FAERS Safety Report 13602573 (Version 1)
Quarter: 2017Q2

REPORT INFORMATION
  Report Type: Spontaneous
  Country: CA (occurrence: CA)
  Receive Date: 20170601
  Receipt Date: 20170601
  Transmission Date: 20170830
  Serious: Yes (Death)
  Sender: FDA-Public Use
  Company Number: CA-PFIZER INC-2017190145

PATIENT
  Age: 69 Year
  Sex: Female

DRUGS (3)
  1. RAPAMUNE [Suspect]
     Active Substance: SIROLIMUS
     Dosage: 1 MG, 3X/DAY
  2. RAPAMUNE [Suspect]
     Active Substance: SIROLIMUS
     Dosage: 1 MG, 2X/DAY
  3. RAPAMUNE [Suspect]
     Active Substance: SIROLIMUS
     Indication: HEPATIC NEOPLASM
     Dosage: ^5 MG, 2X/DAY^

REACTIONS (3)
  - Product use in unapproved indication [Unknown]
  - Death [Fatal]
  - Drug dispensing error [Unknown]

NARRATIVE: CASE EVENT DATE: 20170514
